FAERS Safety Report 17683502 (Version 1)
Quarter: 2020Q2

REPORT INFORMATION
  Report Type: Spontaneous
  Country: US (occurrence: US)
  Receive Date: 20200420
  Receipt Date: 20200420
  Transmission Date: 20200714
  Serious: No
  Sender: FDA-Public Use
  Company Number: US-GLAXOSMITHKLINE-US2020063929

PATIENT
  Sex: Female

DRUGS (1)
  1. BREO ELLIPTA [Suspect]
     Active Substance: FLUTICASONE FUROATE\VILANTEROL TRIFENATATE
     Indication: NASOPHARYNGITIS
     Dosage: UNK
     Route: 065
     Dates: start: 2015

REACTIONS (6)
  - Wrong technique in device usage process [Unknown]
  - Wheezing [Unknown]
  - Intentional product misuse [Unknown]
  - Product use in unapproved indication [Unknown]
  - Off label use [Unknown]
  - Dyspnoea [Unknown]
